FAERS Safety Report 4459228-7 (Version None)
Quarter: 2004Q3

REPORT INFORMATION
  Report Type: 
  Country: None (occurrence: None)
  Receive Date: 20040923
  Receipt Date: 20040917
  Transmission Date: 20050211
  Serious: Yes (Death, Hospitalization)
  Sender: FDA-Public Use
  Company Number: 2004UW18687

PATIENT
  Age: 67 Year
  Sex: Female
  Weight: 103.4201 kg

DRUGS (15)
  1. CRESTOR [Suspect]
     Indication: HYPERLIPIDAEMIA
     Dosage: 10 MG QD PO
     Route: 048
     Dates: start: 20040107, end: 20040305
  2. TOPROL-XL [Concomitant]
  3. PROTONIX [Concomitant]
  4. GLUCOPHAGE [Concomitant]
  5. PREDNISONE [Concomitant]
  6. GEMFINROZIL [Concomitant]
  7. LANTUS [Concomitant]
  8. LASIX [Concomitant]
  9. CELEXA [Concomitant]
  10. POTASSIUM CHLORIDE [Concomitant]
  11. ADVAIR DISKUS 100/50 [Concomitant]
  12. FERROUS SULFATE TAB [Concomitant]
  13. FOLATE [Concomitant]
  14. NYSTATIN [Concomitant]
  15. BENADRYL [Concomitant]

REACTIONS (6)
  - CEREBROVASCULAR ACCIDENT [None]
  - GASTROINTESTINAL HAEMORRHAGE [None]
  - MUSCULAR WEAKNESS [None]
  - MYALGIA [None]
  - SEPSIS [None]
  - UROSEPSIS [None]
